FAERS Safety Report 16321979 (Version 2)
Quarter: 2019Q2

REPORT INFORMATION
  Report Type: Report from Study
  Country: US (occurrence: US)
  Receive Date: 20190516
  Receipt Date: 20190521
  Transmission Date: 20190711
  Serious: Yes (Other)
  Sender: FDA-Public Use
  Company Number: US-GLAXOSMITHKLINE-US2019GSK061599

PATIENT
  Age: 66 Year
  Sex: Female

DRUGS (2)
  1. BUPROPION HYDROCHLORIDE XL [Suspect]
     Active Substance: BUPROPION HYDROCHLORIDE
     Dosage: 300 MG, QD
     Route: 048
     Dates: start: 2017, end: 2018
  2. BUPROPION HYDROCHLORIDE XL [Suspect]
     Active Substance: BUPROPION HYDROCHLORIDE
     Indication: SMOKING CESSATION THERAPY
     Dosage: 150 MG, BID
     Route: 048
     Dates: start: 2017

REACTIONS (10)
  - Eating disorder [Not Recovered/Not Resolved]
  - General physical health deterioration [Unknown]
  - Insomnia [Not Recovered/Not Resolved]
  - Product dose omission [Unknown]
  - Insurance issue [Unknown]
  - Ill-defined disorder [Not Recovered/Not Resolved]
  - Depression [Not Recovered/Not Resolved]
  - Off label use [Unknown]
  - Product use in unapproved indication [Unknown]
  - Feeling abnormal [Not Recovered/Not Resolved]

NARRATIVE: CASE EVENT DATE: 2017
